FAERS Safety Report 14635839 (Version 2)
Quarter: 2018Q2

REPORT INFORMATION
  Report Type: Spontaneous
  Country: DE (occurrence: DE)
  Receive Date: 20180314
  Receipt Date: 20180630
  Transmission Date: 20180711
  Serious: Yes (Hospitalization, Other)
  Sender: FDA-Public Use
  Company Number: DE-AUROBINDO-AUR-APL-2018-013714

PATIENT
  Age: 55 Year
  Sex: Female

DRUGS (7)
  1. ARIPIPRAZOLE TABLETS [Suspect]
     Active Substance: ARIPIPRAZOLE
     Dosage: 10 MILLIGRAM, ONCE A DAY
     Route: 065
     Dates: start: 20170806, end: 20170807
  2. LORAZEPAM. [Concomitant]
     Active Substance: LORAZEPAM
     Indication: PRODUCT USED FOR UNKNOWN INDICATION
     Dosage: 03-AUG-2017 TO 09-AUG-2017,10-AUG-2017 TO 11-AUG-2017 AND ON 17-AUG-2017 FOR ONE DAY
     Route: 048
     Dates: start: 20170731
  3. QUETIAPINE. [Suspect]
     Active Substance: QUETIAPINE
     Indication: SCHIZOPHRENIA
     Dosage: 600 MILLIGRAM, ONCE A DAY, OTHER REGIMEN WERE ALSO GIVEN WITH DIFFERENT DOSES ON DIFFERENT DATE.
     Route: 048
  4. AMISULPRIDE [Concomitant]
     Active Substance: AMISULPRIDE
     Indication: PRODUCT USED FOR UNKNOWN INDICATION
     Dosage: 06-AUG-2017 TO UNK,08-AUG-2017 TO UNK, 09-AUG-2017 TO UNK, ()
     Route: 065
     Dates: start: 20170806
  5. ARIPIPRAZOLE TABLETS [Suspect]
     Active Substance: ARIPIPRAZOLE
     Indication: SCHIZOPHRENIA
     Dosage: 25 MILLIGRAM, ONCE A DAY
     Route: 048
     Dates: start: 20170805
  6. ARIPIPRAZOLE TABLETS [Suspect]
     Active Substance: ARIPIPRAZOLE
     Dosage: 30 MILLIGRAM, ONCE A DAY
     Route: 048
     Dates: start: 20161001, end: 20170807
  7. LORAZEPAM. [Concomitant]
     Active Substance: LORAZEPAM
     Dosage: 03-AUG-2017 TO 09-AUG-2017,10-AUG-2017 TO 11-AUG-2017 AND ON 17-AUG-2017 FOR ONE DAY
     Route: 065
     Dates: start: 20170803, end: 20170817

REACTIONS (5)
  - Vitamin B12 decreased [Unknown]
  - Fatigue [Not Recovered/Not Resolved]
  - Blood folate decreased [Unknown]
  - Macrocytosis [Unknown]
  - Alopecia [Not Recovered/Not Resolved]

NARRATIVE: CASE EVENT DATE: 20170802
